FAERS Safety Report 6710844-9 (Version None)
Quarter: 2010Q2

REPORT INFORMATION
  Report Type: 
  Country: None (occurrence: None)
  Receive Date: 20100505
  Receipt Date: 20100428
  Transmission Date: 20101027
  Serious: No
  Sender: FDA-Public Use
  Company Number: US-BIOGENIDEC-2010BI011064

PATIENT
  Sex: Female

DRUGS (10)
  1. TYSABRI [Suspect]
     Indication: MULTIPLE SCLEROSIS
     Route: 042
     Dates: start: 20050221, end: 20050221
  2. TYSABRI [Suspect]
     Route: 042
     Dates: start: 20070123
  3. AVONEX [Concomitant]
     Route: 030
     Dates: start: 20010501, end: 20060101
  4. CHANTIX [Concomitant]
     Indication: SMOKING CESSATION THERAPY
     Dates: end: 20080301
  5. VICODIN [Concomitant]
     Indication: BREAKTHROUGH PAIN
  6. BACLOFEN [Concomitant]
     Indication: MUSCULOSKELETAL STIFFNESS
  7. ARICEPT [Concomitant]
     Indication: MEMORY IMPAIRMENT
  8. XANAX [Concomitant]
     Indication: ANXIETY
  9. ORAL CONTRACEPTIVE [Concomitant]
  10. VESICARE [Concomitant]

REACTIONS (9)
  - ANKLE FRACTURE [None]
  - ASTHMA [None]
  - BACK PAIN [None]
  - CRYING [None]
  - HEADACHE [None]
  - JOINT SPRAIN [None]
  - RESIDUAL URINE [None]
  - URINARY INCONTINENCE [None]
  - URINARY TRACT INFECTION [None]
